FAERS Safety Report 5108618-8 (Version None)
Quarter: 2006Q3

REPORT INFORMATION
  Report Type: 
  Country: None (occurrence: None)
  Receive Date: 20060915
  Receipt Date: 20060904
  Transmission Date: 20061208
  Serious: Yes (Other)
  Sender: FDA-Public Use
  Company Number: CH-GDP-0613566

PATIENT
  Age: 29 Year
  Sex: Female

DRUGS (6)
  1. DIFFERIN [Suspect]
     Indication: ACNE
     Dates: start: 20040101
  2. SEROPRAM [Suspect]
     Indication: CONDUCT DISORDER
     Dosage: 20 MG QD PO
     Route: 048
     Dates: start: 20030101
  3. SEROPRAM [Suspect]
     Indication: DEPRESSION
     Dosage: 20 MG QD PO
     Route: 048
     Dates: start: 20030101
  4. VENTOLIN [Suspect]
     Indication: ASTHMA
     Dates: start: 20050314
  5. DALACIN TOPICO [Suspect]
     Indication: ACNE
     Dates: start: 20040101
  6. PROCOUTOL [Suspect]
     Indication: ACNE
     Dates: start: 20040101

REACTIONS (4)
  - ABORTION INDUCED [None]
  - DRUG DOSE OMISSION [None]
  - DRUG EXPOSURE DURING PREGNANCY [None]
  - PREGNANCY ON ORAL CONTRACEPTIVE [None]
